FAERS Safety Report 6520889-X (Version None)
Quarter: 2009Q4

REPORT INFORMATION
  Report Type: 
  Country: None (occurrence: None)
  Receive Date: 20091229
  Receipt Date: 20091218
  Transmission Date: 20100525
  Serious: No
  Sender: FDA-Public Use
  Company Number: US-JNJFOC-20091206463

PATIENT
  Sex: Male
  Weight: 136.08 kg

DRUGS (1)
  1. FENTANYL-100 [Suspect]
     Indication: BACK PAIN
     Route: 062

REACTIONS (2)
  - DRUG INEFFECTIVE [None]
  - INAPPROPRIATE SCHEDULE OF DRUG ADMINISTRATION [None]
